FAERS Safety Report 11595152 (Version 1)
Quarter: 2015Q4

REPORT INFORMATION
  Report Type: Spontaneous
  Country: FR (occurrence: FR)
  Receive Date: 20151006
  Receipt Date: 20151006
  Transmission Date: 20160304
  Serious: Yes (Hospitalization)
  Sender: FDA-Public Use
  Company Number: FR-ROCHE-1641273

PATIENT
  Age: 73 Year
  Sex: Male

DRUGS (6)
  1. OFLOXACINE [Suspect]
     Active Substance: OFLOXACIN
     Indication: INFECTION
     Dosage: ARROW
     Route: 048
     Dates: start: 20150601, end: 20150625
  2. ROCEPHINE [Suspect]
     Active Substance: CEFTRIAXONE SODIUM
     Indication: INFECTION
     Route: 041
     Dates: start: 20150622, end: 20150625
  3. CALCIPARINE [Concomitant]
     Active Substance: HEPARIN CALCIUM
     Route: 058
     Dates: start: 20150625, end: 20150710
  4. RIMACTAN [Suspect]
     Active Substance: RIFAMPIN
     Indication: INFECTION
     Route: 048
     Dates: start: 20150615, end: 20150625
  5. CLOXACILLIN [Concomitant]
     Active Substance: CLOXACILLIN
     Dosage: PANPHARMA
     Route: 041
     Dates: start: 20150601, end: 20150615
  6. INNOHEP [Concomitant]
     Active Substance: TINZAPARIN SODIUM
     Indication: THROMBOSIS
     Route: 065
     Dates: start: 20150619, end: 20150625

REACTIONS (2)
  - Chronic kidney disease [Recovering/Resolving]
  - Eosinophilia [Recovered/Resolved]

NARRATIVE: CASE EVENT DATE: 201506
